FAERS Safety Report 19069835 (Version 4)
Quarter: 2021Q2

REPORT INFORMATION
  Report Type: Report from Study
  Country: KR (occurrence: KR)
  Receive Date: 20210329
  Receipt Date: 20210610
  Transmission Date: 20210717
  Serious: Yes (Hospitalization)
  Sender: FDA-Public Use
  Company Number: KR-PFIZER INC-2021309620

PATIENT
  Age: 80 Year
  Sex: Male
  Weight: 67.4 kg

DRUGS (3)
  1. TALAZOPARIB. [Suspect]
     Active Substance: TALAZOPARIB
     Indication: PROSTATE CANCER METASTATIC
     Dosage: UNK, QD
     Route: 048
     Dates: start: 20200817, end: 20201124
  2. ENZALUTAMIDE [Suspect]
     Active Substance: ENZALUTAMIDE
     Indication: PROSTATE CANCER METASTATIC
     Dosage: 160 MG, QD
     Route: 048
     Dates: start: 20200817, end: 20210312
  3. TALAZOPARIB. [Suspect]
     Active Substance: TALAZOPARIB
     Dosage: UNK, QD
     Route: 048
     Dates: start: 20201208, end: 20210312

REACTIONS (1)
  - Haematuria [Recovered/Resolved]

NARRATIVE: CASE EVENT DATE: 20210312
